FAERS Safety Report 7612253-7 (Version None)
Quarter: 2011Q3

REPORT INFORMATION
  Report Type: 
  Country: None (occurrence: None)
  Receive Date: 20110715
  Receipt Date: 20110712
  Transmission Date: 20111222
  Serious: Yes (Death, Other)
  Sender: FDA-Public Use
  Company Number: PHFR2011GB03848

PATIENT
  Sex: Male

DRUGS (7)
  1. NIFEDIPINE [Concomitant]
     Indication: BLOOD PRESSURE INCREASED
     Dosage: 40 MG/DAY
     Route: 048
  2. CLOZAPINE [Suspect]
     Indication: SCHIZOPHRENIA
     Dosage: 100 MG + 100 MG + 200 MG
     Route: 048
     Dates: start: 19921109
  3. HYOSCINE BUTYLBROMIDE INJ SABEX STANDARD [Suspect]
     Indication: SALIVARY HYPERSECRETION
     Dosage: 300 UG/DAY
     Route: 048
  4. ATENOLOL [Concomitant]
     Indication: BLOOD PRESSURE INCREASED
     Dosage: 25 MG/DAY
     Route: 048
  5. LITHIUM CARBONATE [Suspect]
     Indication: SCHIZOAFFECTIVE DISORDER
     Dosage: 600 MG/DAY
     Route: 048
  6. LACTULOSE [Concomitant]
     Indication: CONSTIPATION
     Dosage: 15 ML, BID
  7. GAVISCON [Concomitant]
     Indication: DYSPEPSIA
     Dosage: 5 ML, TID
     Route: 048

REACTIONS (7)
  - CIRCULATORY COLLAPSE [None]
  - LOWER RESPIRATORY TRACT INFECTION [None]
  - BRONCHIAL CARCINOMA [None]
  - HYPOTHYROIDISM [None]
  - HYPERTENSION [None]
  - HAEMORRHAGE [None]
  - HYPERTHYROIDISM [None]
